FAERS Safety Report 21854892 (Version 2)
Quarter: 2023Q1

REPORT INFORMATION
  Report Type: Spontaneous
  Country: US (occurrence: US)
  Receive Date: 20230112
  Receipt Date: 20230131
  Transmission Date: 20230418
  Serious: No
  Sender: FDA-Public Use
  Company Number: US-ALKERMES INC.-ALK-2023-000140

PATIENT
  Sex: Female

DRUGS (7)
  1. VIVITROL [Suspect]
     Active Substance: NALTREXONE
     Indication: Alcoholism
     Dosage: 380 MILLIGRAM, QMO
     Route: 030
     Dates: start: 20221007
  2. VIVITROL [Suspect]
     Active Substance: NALTREXONE
     Dosage: 380 MILLIGRAM, Q28D
     Route: 030
     Dates: start: 20220913
  3. LEXAPRO [Concomitant]
     Active Substance: ESCITALOPRAM OXALATE
     Indication: Affective disorder
     Dosage: 20 MILLIGRAM, QD
     Route: 048
     Dates: start: 20220826
  4. WELLBUTRIN XL [Concomitant]
     Active Substance: BUPROPION HYDROCHLORIDE
     Indication: Affective disorder
     Dosage: 300 MILLIGRAM, QAM
     Route: 048
     Dates: start: 20220826
  5. VYVANSE [Concomitant]
     Active Substance: LISDEXAMFETAMINE DIMESYLATE
     Indication: Attention deficit hyperactivity disorder
     Dosage: 30 MILLIGRAM, QD
     Route: 048
     Dates: start: 20220826
  6. BUSPAR [Concomitant]
     Active Substance: BUSPIRONE HYDROCHLORIDE
     Indication: Anxiety
     Dosage: 5 MILLIGRAM, BID
     Route: 048
     Dates: start: 20220826
  7. BUSPAR [Concomitant]
     Active Substance: BUSPIRONE HYDROCHLORIDE
     Indication: Depression

REACTIONS (4)
  - Product administered at inappropriate site [Recovered/Resolved]
  - Injection site reaction [Unknown]
  - Injection site mass [Unknown]
  - Alcoholism [Unknown]
